FAERS Safety Report 21186720 (Version 3)
Quarter: 2023Q1

REPORT INFORMATION
  Report Type: Report from Study
  Country: KR (occurrence: KR)
  Receive Date: 20220808
  Receipt Date: 20230111
  Transmission Date: 20230417
  Serious: Yes (Hospitalization, Disabling, Other)
  Sender: FDA-Public Use
  Company Number: KR-ViiV Healthcare Limited-KR2022GSK115575

PATIENT

DRUGS (16)
  1. DOLUTEGRAVIR SODIUM\LAMIVUDINE [Suspect]
     Active Substance: DOLUTEGRAVIR SODIUM\LAMIVUDINE
     Indication: HIV infection
     Dosage: 1 DF, QD
     Route: 048
     Dates: start: 20210618
  2. TRASPEN [Concomitant]
     Indication: Arthralgia
     Dosage: 1 DF, TID (325MG/37.5MG)
     Route: 048
     Dates: start: 20200225
  3. NEXIUM [Concomitant]
     Active Substance: ESOMEPRAZOLE MAGNESIUM
     Indication: Gastrooesophageal reflux disease
     Dosage: 1 DF, QD
     Route: 048
     Dates: start: 20191206
  4. ASPIRIN [Concomitant]
     Active Substance: ASPIRIN
     Indication: Chest discomfort
     Dosage: 1 DF, QD
     Route: 048
     Dates: start: 20150209
  5. ALLEGRA [Concomitant]
     Active Substance: FEXOFENADINE HYDROCHLORIDE
     Indication: Pruritus
     Dosage: 1 DF, QD
     Route: 048
     Dates: start: 20150202
  6. ALLEGRA [Concomitant]
     Active Substance: FEXOFENADINE HYDROCHLORIDE
     Dosage: 180 MG, QD
     Route: 048
     Dates: start: 20211227
  7. DIGOXIN [Concomitant]
     Active Substance: DIGOXIN
     Indication: Chest discomfort
     Dosage: 0.25MG/1ML, QD
     Route: 042
     Dates: start: 20220217, end: 20220217
  8. DIGOXIN [Concomitant]
     Active Substance: DIGOXIN
     Indication: Atrial fibrillation
  9. DIOVAN [Concomitant]
     Active Substance: VALSARTAN
     Indication: Chest discomfort
     Dosage: 40 MG, QD
     Route: 048
     Dates: start: 20211123
  10. DIOVAN [Concomitant]
     Active Substance: VALSARTAN
     Indication: Atrial fibrillation
  11. ALDACTONE FILM COATED [Concomitant]
     Indication: Pulmonary oedema
     Dosage: 25 MG, QD
     Route: 048
     Dates: start: 20211123
  12. ELIQUIS [Concomitant]
     Active Substance: APIXABAN
     Indication: Atrial fibrillation
     Dosage: 2.5 MG, BID
     Route: 048
     Dates: start: 20211124
  13. TWOLION [Concomitant]
     Indication: Pruritus
     Dosage: 1 DF, BID
     Route: 048
     Dates: start: 20181023
  14. TWOLION [Concomitant]
     Dosage: 10 MG, BID
     Route: 048
     Dates: start: 20211227
  15. NITROGLYCERIN [Concomitant]
     Active Substance: NITROGLYCERIN
     Indication: Dyspnoea
     Dosage: 0.1%10MG/10ML, SINGLE
     Route: 042
     Dates: start: 20220217, end: 20220217
  16. NITROGLYCERIN [Concomitant]
     Active Substance: NITROGLYCERIN
     Indication: Chest discomfort

REACTIONS (2)
  - COVID-19 [Recovered/Resolved]
  - Femoral neck fracture [Recovered/Resolved]

NARRATIVE: CASE EVENT DATE: 20220217
